FAERS Safety Report 17751824 (Version 5)
Quarter: 2020Q2

REPORT INFORMATION
  Report Type: Report from Study
  Country: DE (occurrence: DE)
  Receive Date: 20200506
  Receipt Date: 20200526
  Transmission Date: 20200714
  Serious: Yes (Other)
  Sender: FDA-Public Use
  Company Number: DE-PFIZER INC-2020177559

PATIENT
  Age: 35 Year
  Sex: Female
  Weight: 153 kg

DRUGS (12)
  1. ADVANTAN [Suspect]
     Active Substance: METHYLPREDNISOLONE ACEPONATE
     Dosage: UNK
     Route: 065
  2. DEKRISTOL [Suspect]
     Active Substance: CHOLECALCIFEROL
     Dosage: 20 INTERNATIONAL UNIT
     Route: 065
  3. URSOFALK [Suspect]
     Active Substance: URSODIOL
     Dosage: UNK
     Route: 065
  4. PREDNISOLONE. [Suspect]
     Active Substance: PREDNISOLONE
     Dosage: UNK
     Route: 065
  5. ACICLOVIR [Suspect]
     Active Substance: ACYCLOVIR
     Dosage: 200 MILLIGRAM
     Route: 065
  6. TOREM [TORASEMIDE] [Suspect]
     Active Substance: TORSEMIDE
     Dosage: UNK
     Route: 065
  7. PANTOZOL [Suspect]
     Active Substance: PANTOPRAZOLE SODIUM
     Dosage: UNK
     Route: 065
  8. NOXAFIL [Suspect]
     Active Substance: POSACONAZOLE
     Dosage: UNK
     Route: 065
  9. COTRIMHEXAL [Suspect]
     Active Substance: SULFAMETHOXAZOLE\TRIMETHOPRIM
     Dosage: 960 MILLIGRAM
     Route: 065
  10. FOLSAN [Suspect]
     Active Substance: FOLIC ACID
     Dosage: UNK
     Route: 065
  11. ALLOPURINOL. [Suspect]
     Active Substance: ALLOPURINOL
     Dosage: UNK
     Route: 065
  12. TACROLIMUS. [Suspect]
     Active Substance: TACROLIMUS
     Dosage: UNK
     Route: 065

REACTIONS (7)
  - Deep vein thrombosis [Unknown]
  - Coagulation test abnormal [Unknown]
  - Skin discolouration [Unknown]
  - Dyspnoea [Unknown]
  - Peripheral swelling [Unknown]
  - Pulmonary embolism [Unknown]
  - Musculoskeletal stiffness [Unknown]

NARRATIVE: CASE EVENT DATE: 20190213
